FAERS Safety Report 25292596 (Version 3)
Quarter: 2025Q4

REPORT INFORMATION
  Report Type: Spontaneous
  Country: US (occurrence: US)
  Receive Date: 20250510
  Receipt Date: 20251115
  Transmission Date: 20260118
  Serious: No
  Sender: SANOFI AVENTIS
  Company Number: US-SA-2025SA124870

PATIENT
  Age: 14 Year
  Sex: Female
  Weight: 47.619 kg

DRUGS (2)
  1. DUPIXENT [Suspect]
     Active Substance: DUPILUMAB
     Indication: Dermatitis atopic
     Dosage: 200 MG, QOW
     Route: 058
  2. TRIAMCINOLONE ACETONIDE [Concomitant]
     Active Substance: TRIAMCINOLONE ACETONIDE
     Dosage: UNK

REACTIONS (8)
  - Injection site warmth [Recovering/Resolving]
  - Injection site rash [Recovering/Resolving]
  - Injection site erythema [Recovering/Resolving]
  - Injection site pain [Recovering/Resolving]
  - Injection site pruritus [Recovering/Resolving]
  - Injection site swelling [Recovering/Resolving]
  - Dermatitis atopic [Unknown]
  - Product dose omission issue [Unknown]

NARRATIVE: CASE EVENT DATE: 20250425
